FAERS Safety Report 13778706 (Version 1)
Quarter: 2017Q3

REPORT INFORMATION
  Report Type: Spontaneous
  Country: FR (occurrence: FR)
  Receive Date: 20170721
  Receipt Date: 20170721
  Transmission Date: 20171127
  Serious: Yes (Other)
  Sender: FDA-Public Use
  Company Number: FR-PFIZER INC-2017253604

PATIENT
  Age: 23 Year
  Sex: Male
  Weight: 115 kg

DRUGS (3)
  1. CHAMPIX [Suspect]
     Active Substance: VARENICLINE TARTRATE
     Dosage: UNK
  2. TETRALYSAL [Concomitant]
     Active Substance: LYMECYCLINE
     Indication: SKIN DISORDER
     Dosage: UNK
  3. EFFIZINC [Concomitant]
     Active Substance: ZINC GLUCONATE
     Indication: SKIN DISORDER
     Dosage: UNK

REACTIONS (4)
  - Hallucination [Recovering/Resolving]
  - Flat affect [Recovering/Resolving]
  - Mood swings [Recovering/Resolving]
  - Aggression [Recovering/Resolving]

NARRATIVE: CASE EVENT DATE: 20161117
